FAERS Safety Report 17437555 (Version 2)
Quarter: 2020Q1

REPORT INFORMATION
  Report Type: Spontaneous
  Country: GR (occurrence: GR)
  Receive Date: 20200219
  Receipt Date: 20200227
  Transmission Date: 20200409
  Serious: Yes (Hospitalization, Other)
  Sender: FDA-Public Use
  Company Number: GR-PFIZER INC-2020063005

PATIENT
  Age: 32 Year
  Sex: Female

DRUGS (3)
  1. BUDESONIDE. [Suspect]
     Active Substance: BUDESONIDE
     Dosage: 800 UG, 1X/DAY
     Route: 055
  2. METHYLPREDNISOLONE SODIUM SUCCINATE. [Suspect]
     Active Substance: METHYLPREDNISOLONE SODIUM SUCCINATE
     Dosage: 120 MG, 1X/DAY
     Route: 042
  3. METHYLPREDNISOLONE. [Suspect]
     Active Substance: METHYLPREDNISOLONE
     Dosage: 24 MG, 1X/DAY
     Route: 048

REACTIONS (11)
  - Mucosal ulceration [Not Recovered/Not Resolved]
  - Bronchoscopy abnormal [Not Recovered/Not Resolved]
  - Metaplasia [Not Recovered/Not Resolved]
  - Oedema mucosal [Not Recovered/Not Resolved]
  - Inflammation [Not Recovered/Not Resolved]
  - Haemorrhage [Not Recovered/Not Resolved]
  - Laryngeal obstruction [Not Recovered/Not Resolved]
  - Stridor [Not Recovered/Not Resolved]
  - Fibrosis [Not Recovered/Not Resolved]
  - Laryngeal stenosis [Not Recovered/Not Resolved]
  - Tracheal obstruction [Not Recovered/Not Resolved]
